FAERS Safety Report 8693192 (Version 3)
Quarter: 2012Q4

REPORT INFORMATION
  Report Type: 
  Country: US (occurrence: US)
  Receive Date: 20120730
  Receipt Date: 20120910
  Transmission Date: 20130627
  Serious: Yes (Death, Hospitalization, Other)
  Sender: FDA-Public Use
  Company Number: US-B.I. PHARMACEUTICALS,INC./RIDGEFIELD-2012-BP-17043BP

PATIENT
  Age: 77 None
  Sex: Female
  Weight: 96.62 kg

DRUGS (6)
  1. PRADAXA [Suspect]
     Indication: ATRIAL FIBRILLATION
     Dosage: 300 mg
     Dates: start: 201203
  2. NEXIUM [Concomitant]
  3. LASIX [Concomitant]
  4. METOPROLOL [Concomitant]
  5. UNSPECIFIED BLOOD PRESSURE MEDICINES [Concomitant]
     Indication: HYPERTENSION
  6. UNSPECIFIED CHOLESTEROL LOWERING MEDICATIONS [Concomitant]
     Indication: BLOOD CHOLESTEROL INCREASED

REACTIONS (2)
  - Haemorrhage intracranial [Fatal]
  - Atrial fibrillation [Unknown]
